FAERS Safety Report 20126777 (Version 1)
Quarter: 2021Q4

REPORT INFORMATION
  Report Type: Spontaneous
  Country: US (occurrence: None)
  Receive Date: 20211129
  Receipt Date: 20211129
  Transmission Date: 20220303
  Serious: Yes (Other)
  Sender: FDA-Public Use
  Company Number: US-ROCHE-2961328

PATIENT
  Age: 46 Year
  Sex: Female

DRUGS (14)
  1. OCREVUS [Suspect]
     Active Substance: OCRELIZUMAB
     Indication: Multiple sclerosis
     Route: 065
     Dates: start: 2018, end: 2020
  2. CLONAZEPAM [Suspect]
     Active Substance: CLONAZEPAM
     Indication: Migraine
     Route: 065
  3. ADVIL [Concomitant]
     Active Substance: IBUPROFEN
     Indication: Nausea
  4. BACLOFEN [Concomitant]
     Active Substance: BACLOFEN
     Indication: Back pain
  5. SOLU-MEDROL [Concomitant]
     Active Substance: METHYLPREDNISOLONE SODIUM SUCCINATE
     Indication: Multiple sclerosis relapse
  6. BOTOX [Concomitant]
     Active Substance: ONABOTULINUMTOXINA
     Indication: Seizure
  7. DEPAKOTE [Concomitant]
     Active Substance: DIVALPROEX SODIUM
  8. GABAPENTIN [Concomitant]
     Active Substance: GABAPENTIN
  9. CYMBALTA [Concomitant]
     Active Substance: DULOXETINE HYDROCHLORIDE
  10. LEXAPRO [Concomitant]
     Active Substance: ESCITALOPRAM OXALATE
  11. TOPAMAX [Concomitant]
     Active Substance: TOPIRAMATE
  12. ZOLMITRIPTAN [Concomitant]
     Active Substance: ZOLMITRIPTAN
     Indication: Migraine
  13. EMGALITY [Concomitant]
     Active Substance: GALCANEZUMAB-GNLM
  14. MESALAMINE [Concomitant]
     Active Substance: MESALAMINE

REACTIONS (8)
  - JC polyomavirus test positive [Unknown]
  - Hepatic function abnormal [Unknown]
  - Alopecia [Recovering/Resolving]
  - White blood cell count decreased [Unknown]
  - CD4 lymphocytes decreased [Unknown]
  - Neoplasm malignant [Unknown]
  - Ulcer haemorrhage [Unknown]
  - Colitis ulcerative [Unknown]

NARRATIVE: CASE EVENT DATE: 20190401
